FAERS Safety Report 21599787 (Version 1)
Quarter: 2022Q4

REPORT INFORMATION
  Report Type: Report from Study
  Country: US (occurrence: None)
  Receive Date: 20221115
  Receipt Date: 20221115
  Transmission Date: 20230113
  Serious: Yes (Life-Threatening, Other)
  Sender: FDA-Public Use
  Company Number: 2022A375447

PATIENT

DRUGS (1)
  1. SELUMETINIB [Suspect]
     Active Substance: SELUMETINIB
     Indication: Neurofibromatosis
     Dosage: UNK
     Route: 048

REACTIONS (77)
  - Abdominal pain [Unknown]
  - Diarrhoea [Unknown]
  - Constipation [Unknown]
  - Nausea [Unknown]
  - Vomiting [Unknown]
  - Decreased appetite [Unknown]
  - Stomatitis [Unknown]
  - Mouth haemorrhage [Unknown]
  - Gastrooesophageal reflux disease [Unknown]
  - Flatulence [Unknown]
  - Anal incontinence [Unknown]
  - Dermatitis acneiform [Unknown]
  - Rash maculo-papular [Unknown]
  - Rash pustular [Unknown]
  - Pruritus [Unknown]
  - Dry skin [Unknown]
  - Alopecia [Unknown]
  - Hair colour changes [Unknown]
  - Cheilitis [Unknown]
  - Flushing [Unknown]
  - Urticaria [Unknown]
  - Skin disorder [Unknown]
  - Dermatitis allergic [Unknown]
  - Nail infection [Unknown]
  - Skin hypopigmentation [Unknown]
  - Blood alkaline phosphatase [Unknown]
  - Aspartate aminotransferase increased [Unknown]
  - Alanine aminotransferase increased [Unknown]
  - Blood bilirubin increased [Unknown]
  - Blood creatine phosphokinase increased [Unknown]
  - Blood albumin decreased [Unknown]
  - Blood calcium abnormal [Unknown]
  - Blood sodium increased [Unknown]
  - Blood phosphorus decreased [Unknown]
  - Blood potassium abnormal [Unknown]
  - Blood glucose increased [Unknown]
  - Lipase increased [Unknown]
  - Amylase increased [Unknown]
  - Fatigue [Unknown]
  - Pyrexia [Unknown]
  - Influenza like illness [Unknown]
  - Oedema peripheral [Unknown]
  - Localised oedema [Unknown]
  - Weight increased [Unknown]
  - White blood cell count decreased [Unknown]
  - Neutrophil count decreased [Unknown]
  - Lymphocyte count abnormal [Unknown]
  - Anaemia [Unknown]
  - Haemoglobin increased [Unknown]
  - Platelet count decreased [Unknown]
  - Epistaxis [Unknown]
  - Headache [Unknown]
  - Dizziness [Unknown]
  - Anxiety [Unknown]
  - Depression [Unknown]
  - Insomnia [Unknown]
  - Disturbance in attention [Unknown]
  - Presyncope [Unknown]
  - Back pain [Unknown]
  - Pain in extremity [Unknown]
  - Oropharyngeal pain [Unknown]
  - Myalgia [Unknown]
  - Joint effusion [Unknown]
  - Blood creatinine increased [Unknown]
  - Proteinuria [Unknown]
  - Haematuria [Unknown]
  - Micturition urgency [Unknown]
  - Skin infection [Unknown]
  - Hypertension [Unknown]
  - Ejection fraction decreased [Unknown]
  - Sinus tachycardia [Unknown]
  - Angina pectoris [Unknown]
  - Conduction disorder [Unknown]
  - Palpitations [Unknown]
  - Dry eye [Unknown]
  - Hordeolum [Unknown]
  - Cough [Unknown]
